FAERS Safety Report 17533114 (Version 1)
Quarter: 2020Q1

REPORT INFORMATION
  Report Type: Report from Study
  Country: US (occurrence: US)
  Receive Date: 20200312
  Receipt Date: 20200312
  Transmission Date: 20200409
  Serious: Yes (Other)
  Sender: FDA-Public Use
  Company Number: US-SA-2014SA123928

PATIENT
  Age: 56 Year
  Sex: Female

DRUGS (4)
  1. TERIFLUNOMIDE. [Suspect]
     Active Substance: TERIFLUNOMIDE
     Indication: MULTIPLE SCLEROSIS
     Dosage: 14 MG,QD
     Route: 048
     Dates: start: 20140729, end: 201408
  2. VENLAFAXINE [Concomitant]
     Active Substance: VENLAFAXINE HYDROCHLORIDE
     Indication: ANXIETY
  3. TERIFLUNOMIDE. [Suspect]
     Active Substance: TERIFLUNOMIDE
     Dosage: UNK
     Dates: end: 2016
  4. VENLAFAXINE [Concomitant]
     Active Substance: VENLAFAXINE HYDROCHLORIDE
     Indication: DEPRESSION

REACTIONS (6)
  - Neck pain [Unknown]
  - Alopecia [Unknown]
  - Coeliac disease [Unknown]
  - Pain [Unknown]
  - Arthralgia [Unknown]
  - Product dose omission [Unknown]

NARRATIVE: CASE EVENT DATE: 201408
